FAERS Safety Report 10071532 (Version 1)
Quarter: 2014Q2

REPORT INFORMATION
  Report Type: Report from Study
  Country: US (occurrence: US)
  Receive Date: 20140410
  Receipt Date: 20140410
  Transmission Date: 20141212
  Serious: Yes (Death)
  Sender: FDA-Public Use
  Company Number: US-EXELIXIS-CABO-14004167

PATIENT
  Age: 49 Year
  Sex: Female

DRUGS (1)
  1. CABOZANTINIB [Suspect]
     Indication: CONNECTIVE TISSUE NEOPLASM
     Dosage: 60 MG, QD
     Route: 048
     Dates: start: 20130917, end: 20140326

REACTIONS (2)
  - Death [Fatal]
  - Off label use [Unknown]
